FAERS Safety Report 17758690 (Version 1)
Quarter: 2020Q2

REPORT INFORMATION
  Report Type: Report from Study
  Country: None (occurrence: US)
  Receive Date: 20200508
  Receipt Date: 20200508
  Transmission Date: 20200714
  Serious: Yes (Other)
  Sender: FDA-Public Use
  Company Number: US-ABBVIE-20K-163-3394427-00

PATIENT
  Sex: Male

DRUGS (1)
  1. LUPRON [Suspect]
     Active Substance: LEUPROLIDE ACETATE
     Indication: PRECOCIOUS PUBERTY
     Route: 065
     Dates: start: 201907, end: 2020

REACTIONS (4)
  - Adverse drug reaction [Recovered/Resolved]
  - Infectious mononucleosis [Recovered/Resolved]
  - Inflammatory bowel disease [Recovering/Resolving]
  - Colitis [Recovering/Resolving]
